FAERS Safety Report 5722298-X (Version None)
Quarter: 2008Q2

REPORT INFORMATION
  Report Type: 
  Country: None (occurrence: None)
  Receive Date: 20080429
  Receipt Date: 20070905
  Transmission Date: 20081010
  Serious: No
  Sender: FDA-Public Use
  Company Number: US-ASTRAZENECA-2007UW21080

PATIENT

DRUGS (1)
  1. NEXIUM [Suspect]

REACTIONS (3)
  - DRUG INEFFECTIVE [None]
  - MALAISE [None]
  - STOMACH DISCOMFORT [None]
